FAERS Safety Report 8932718 (Version 2)
Quarter: 2013Q1

REPORT INFORMATION
  Report Type: Report from Study
  Country: CA (occurrence: CA)
  Receive Date: 20121129
  Receipt Date: 20130311
  Transmission Date: 20140127
  Serious: Yes (Life-Threatening, Hospitalization)
  Sender: FDA-Public Use
  Company Number: CA-BRISTOL-MYERS SQUIBB COMPANY-17052200

PATIENT
  Age: 55 Year
  Sex: Female

DRUGS (10)
  1. ORENCIA FOR INJ [Suspect]
     Indication: RHEUMATOID ARTHRITIS
     Dosage: NO OF INF:02?LAST INF:05OCT12
     Route: 042
     Dates: start: 20120921
  2. SYNTHROID [Concomitant]
  3. ARAVA [Concomitant]
  4. CELEBREX [Concomitant]
  5. FOLIC ACID [Concomitant]
  6. LOSEC [Concomitant]
  7. PROZAC [Concomitant]
  8. WARFARIN [Concomitant]
  9. PATANOL [Concomitant]
     Dosage: PATANOL EYE DROPS
  10. RHINOCORT [Concomitant]
     Dosage: RHINOCORT NASAL SPRAY

REACTIONS (2)
  - Cystitis [Unknown]
  - Blood pressure decreased [Unknown]
